FAERS Safety Report 13136916 (Version 1)
Quarter: 2017Q1

REPORT INFORMATION
  Report Type: Spontaneous
  Country: US (occurrence: US)
  Receive Date: 20170123
  Receipt Date: 20170123
  Transmission Date: 20170428
  Serious: No
  Sender: FDA-Public Use
  Company Number: US-GLAXOSMITHKLINE-US2017GSK007926

PATIENT

DRUGS (1)
  1. BREO ELLIPTA [Suspect]
     Active Substance: FLUTICASONE FUROATE\VILANTEROL TRIFENATATE
     Indication: PRODUCT USED FOR UNKNOWN INDICATION

REACTIONS (7)
  - Blood cholesterol abnormal [Unknown]
  - Bladder disorder [Unknown]
  - Cardiac disorder [Unknown]
  - Lung disorder [Unknown]
  - Hypertension [Unknown]
  - Oesophageal disorder [Unknown]
  - Hernia [Unknown]
